FAERS Safety Report 7137911-2 (Version None)
Quarter: 2010Q4

REPORT INFORMATION
  Report Type: 
  Country: None (occurrence: None)
  Receive Date: 20101103
  Receipt Date: 20100826
  Transmission Date: 20110411
  Serious: Yes (Other)
  Sender: FDA-Public Use
  Company Number: 2010S1001322

PATIENT
  Age: 82 Year
  Sex: Female
  Weight: 114.6 kg

DRUGS (8)
  1. CUBICIN [Suspect]
     Indication: CELLULITIS
     Dosage: 6.5 MG/KG;Q48H; IV
     Route: 042
     Dates: start: 20090911, end: 20090928
  2. SALBUTAMOL [Concomitant]
  3. DOXAZOSIN [Concomitant]
  4. AMIODARONE [Concomitant]
  5. SIMVASTATIN [Concomitant]
  6. LISINOPRIL [Concomitant]
  7. ATENOLOL [Concomitant]
  8. FUROSEMIDE [Concomitant]

REACTIONS (1)
  - RENAL FAILURE CHRONIC [None]
